FAERS Safety Report 9342393 (Version 1)
Quarter: 2013Q2

REPORT INFORMATION
  Report Type: Spontaneous
  Country: GB (occurrence: None)
  Receive Date: 20130607
  Receipt Date: 20130607
  Transmission Date: 20140414
  Serious: Yes (Other)
  Sender: FDA-Public Use
  Company Number: E2B_00000898

PATIENT
  Age: 79 Year
  Sex: Male
  Weight: 74 kg

DRUGS (8)
  1. SERTRALINE (UNKNOWN) (SERTRALINE) [Suspect]
     Indication: PRODUCT USED FOR UNKNOWN INDICATION
     Dates: start: 20130118
  2. BETAHISTINE (UNKNOWN) [Concomitant]
  3. OMEPRAZOLE (UNKNOWN) [Concomitant]
  4. PARACETAMOL (UNKNOWN) [Concomitant]
  5. IBUPROFEN (UNKNOWN) [Concomitant]
  6. CODEINE PHOSPHATE (UNKNOWN) [Concomitant]
  7. GLANDOSANE (UNKNOWN) [Concomitant]
  8. BENZYDAMINE HYDROCHLORIDE (UNKNOWN) [Concomitant]

REACTIONS (6)
  - Stomatitis [None]
  - Dry mouth [None]
  - Oral pain [None]
  - Dry throat [None]
  - Oropharyngeal pain [None]
  - Mouth ulceration [None]
